FAERS Safety Report 21617454 (Version 3)
Quarter: 2023Q1

REPORT INFORMATION
  Report Type: Spontaneous
  Country: CA (occurrence: CA)
  Receive Date: 20221119
  Receipt Date: 20230102
  Transmission Date: 20230417
  Serious: Yes (Other)
  Sender: FDA-Public Use
  Company Number: CA-CELLTRION INC.-2022CA017691

PATIENT

DRUGS (6)
  1. INFLECTRA [Suspect]
     Active Substance: INFLIXIMAB-DYYB
     Indication: Colitis ulcerative
     Dosage: 10 MG/KG (FIRST DOSE AT WEEK 0 IN HOSPITAL)
     Route: 042
     Dates: start: 20220924, end: 20220924
  2. INFLECTRA [Suspect]
     Active Substance: INFLIXIMAB-DYYB
     Dosage: 10 MG/KG, AT 2, 6 WEEKS, THEN EVERY 8 WEEKS
     Route: 042
  3. INFLECTRA [Suspect]
     Active Substance: INFLIXIMAB-DYYB
     Dosage: 500 MG (SUPPOSED TO RECEIVE 10 MG/KG)
     Route: 042
     Dates: start: 20221109
  4. INFLECTRA [Suspect]
     Active Substance: INFLIXIMAB-DYYB
     Dosage: 500 MG (SUPPOSED TO RECEIVE 10 MG/KG)
     Route: 042
     Dates: start: 20221219
  5. IMURAN [Concomitant]
     Active Substance: AZATHIOPRINE
     Dosage: 50 MG, FREQUENCY UNKNOWN
     Route: 065
  6. PREDNISONE [Concomitant]
     Active Substance: PREDNISONE
     Dosage: 1 DF, UNKNOWN

REACTIONS (7)
  - Weight increased [Recovered/Resolved]
  - Product dose omission issue [Unknown]
  - Incorrect dose administered [Unknown]
  - Off label use [Unknown]
  - Abdominal pain [Not Recovered/Not Resolved]
  - Nausea [Not Recovered/Not Resolved]
  - Dizziness [Not Recovered/Not Resolved]

NARRATIVE: CASE EVENT DATE: 20220101
